FAERS Safety Report 10170979 (Version 1)
Quarter: 2014Q2

REPORT INFORMATION
  Report Type: Spontaneous
  Country: PL (occurrence: PL)
  Receive Date: 20140514
  Receipt Date: 20140514
  Transmission Date: 20141212
  Serious: Yes (Other)
  Sender: FDA-Public Use
  Company Number: PL-JNJFOC-20140503409

PATIENT
  Age: 29 Year
  Sex: Female
  Weight: 59 kg

DRUGS (4)
  1. REMICADE [Suspect]
     Indication: RHEUMATOID ARTHRITIS
     Dosage: 250 ML AND 0.9 PERCENT NACL
     Route: 042
     Dates: start: 20131219, end: 20131219
  2. METYPRED [Concomitant]
     Dosage: SINCE FEW YEARS, STILL TAKING
     Route: 065
  3. DICLOBERL [Concomitant]
     Dosage: SINCE FEW YEARS, STILL TAKING
     Route: 065
  4. METHOTREXATE [Concomitant]
     Dosage: SINCE FEW YEARS, STILL TAKING
     Route: 048

REACTIONS (3)
  - Throat tightness [Unknown]
  - Oropharyngeal pain [Unknown]
  - Dyspnoea [Unknown]
